FAERS Safety Report 9249790 (Version 1)
Quarter: 2013Q2

REPORT INFORMATION
  Report Type: Report from Study
  Country: CA (occurrence: CA)
  Receive Date: 20130423
  Receipt Date: 20130423
  Transmission Date: 20140414
  Serious: Yes (Other)
  Sender: FDA-Public Use
  Company Number: CA-ABBOTT-13P-028-1068870-00

PATIENT
  Age: 31 Year
  Sex: Female

DRUGS (3)
  1. HUMIRA [Suspect]
     Indication: RHEUMATOID ARTHRITIS
     Dates: start: 20080610, end: 20120523
  2. HUMIRA [Suspect]
     Dates: start: 201210, end: 201210
  3. HUMIRA [Suspect]
     Route: 058
     Dates: start: 20130311

REACTIONS (5)
  - Foot deformity [Unknown]
  - Fallopian tube operation [Unknown]
  - Ovarian operation [Unknown]
  - Rheumatoid arthritis [Unknown]
  - Salpingo-oophorectomy [Unknown]
